FAERS Safety Report 8066411-0 (Version None)
Quarter: 2012Q1

REPORT INFORMATION
  Report Type: 
  Country: None (occurrence: None)
  Receive Date: 20120124
  Receipt Date: 20120124
  Transmission Date: 20120608
  Serious: No
  Sender: FDA-Public Use
  Company Number: None

PATIENT
  Age: 87 Year
  Sex: Female

DRUGS (1)
  1. CLINDAMYCIN [Suspect]
     Dosage: 600 MG
     Route: 042
     Dates: start: 20110205, end: 20110205

REACTIONS (3)
  - DRUG HYPERSENSITIVITY [None]
  - LIP SWELLING [None]
  - EYE SWELLING [None]
